FAERS Safety Report 9916714 (Version 2)
Quarter: 2014Q1

REPORT INFORMATION
  Report Type: Spontaneous
  Country: JP (occurrence: JP)
  Receive Date: 20140221
  Receipt Date: 20140312
  Transmission Date: 20141002
  Serious: Yes (Other)
  Sender: FDA-Public Use
  Company Number: JP-PFIZER INC-2014049616

PATIENT
  Age: 49 Year
  Sex: Female
  Weight: 55 kg

DRUGS (16)
  1. LYRICA [Suspect]
     Indication: NEURALGIA
     Dosage: 300 MG, 2X/DAY
     Route: 048
     Dates: start: 20140203, end: 20140214
  2. XYLOCAINE [Suspect]
     Indication: PAIN
     Dosage: 1 DF, 2X/DAY
     Route: 041
     Dates: start: 20140203, end: 20140216
  3. CYMBALTA [Suspect]
     Indication: NEURALGIA
     Dosage: 60 MG DAILY IN 2 DIVIDED DOSES (40 MG ONCE AND 20 MG ONCE)
     Route: 048
     Dates: start: 20140210
  4. CYMBALTA [Suspect]
     Indication: DEPRESSION
  5. TRYPTANOL [Concomitant]
     Indication: PAIN
     Dosage: 75 MG DAILY IN 2 DIVIDED DOSES (25 MG ONCE AND 50 MG ONCE)
     Route: 048
     Dates: start: 20140203, end: 20140224
  6. TRYPTANOL [Concomitant]
     Dosage: 25 MG, 1X/DAY
     Dates: start: 20140225
  7. METHYCOOL [Concomitant]
     Indication: NERVE INJURY
     Dosage: 1 MG, 3X/DAY
     Route: 048
     Dates: start: 20140203
  8. MAGMITT [Concomitant]
     Indication: CONSTIPATION
     Dosage: 660 MG, 3X/DAY
     Route: 048
     Dates: start: 20140203
  9. PURSENNID [Concomitant]
     Indication: CONSTIPATION
     Dosage: 24 MG, 1X/DAY
     Route: 048
     Dates: start: 20140214
  10. CALONAL [Concomitant]
     Indication: PAIN
     Dosage: 400 MG, AS NEEDED
     Route: 048
     Dates: start: 20140203
  11. ISOTONIC SODIUM CHLORIDE SOLUTION [Concomitant]
     Dosage: 200 ML, 2X/DAY
     Route: 041
     Dates: start: 20140203, end: 20140217
  12. ISOTONIC SODIUM CHLORIDE SOLUTION [Concomitant]
     Dosage: 200 ML, 1X/DAY
     Dates: start: 20140218
  13. NEUROTROPIN [Concomitant]
     Indication: PAIN
     Dosage: 3.6 IU, 2X/DAY
     Route: 041
     Dates: start: 20140203
  14. ADETPHOS-L [Concomitant]
     Indication: VASCULAR INSUFFICIENCY
     Dosage: 20 MG, 2X/DAY
     Route: 041
     Dates: start: 20140203
  15. HORIZON [Concomitant]
     Indication: PROPHYLAXIS
     Dosage: 10 MG, 2X/WEEK
     Route: 042
     Dates: start: 20140205
  16. KETALAR [Concomitant]
     Indication: PAIN
     Dosage: 10 MG, 2X/WEEK
     Route: 042
     Dates: start: 20140205

REACTIONS (1)
  - Amylase increased [Recovering/Resolving]
